FAERS Safety Report 5242687-X (Version None)
Quarter: 2007Q1

REPORT INFORMATION
  Report Type: 
  Country: None (occurrence: None)
  Receive Date: 20070221
  Receipt Date: 20070213
  Transmission Date: 20070707
  Serious: Yes (Death, Hospitalization, Other)
  Sender: FDA-Public Use
  Company Number: FI-BRISTOL-MYERS SQUIBB COMPANY-13591680

PATIENT
  Age: 70 Year
  Sex: Male

DRUGS (1)
  1. DASATINIB [Suspect]
     Indication: CHRONIC MYELOID LEUKAEMIA
     Dosage: 70MG FROM 24-NOV-05 - 23-DEC-05; 0MG FROM 24-DEC-05 - 26-JAN-06; 40 MG FROM 23-JUN-06-05-NOV-06
     Route: 048
     Dates: start: 20051124, end: 20061105

REACTIONS (4)
  - CARDIAC FAILURE [None]
  - CHRONIC MYELOID LEUKAEMIA [None]
  - DYSPNOEA [None]
  - MALIGNANT NEOPLASM PROGRESSION [None]
